FAERS Safety Report 8157191-9 (Version None)
Quarter: 2012Q1

REPORT INFORMATION
  Report Type: 
  Country: None (occurrence: None)
  Receive Date: 20120222
  Receipt Date: 20120214
  Transmission Date: 20120608
  Serious: Yes (Hospitalization)
  Sender: FDA-Public Use
  Company Number: US-JNJFOC-20120208991

PATIENT
  Age: 11 Year
  Sex: Female

DRUGS (6)
  1. INFLIXIMAB, RECOMBINANT [Suspect]
     Route: 042
     Dates: start: 20080801
  2. ADALIMUMAB [Concomitant]
  3. ADALIMUMAB [Concomitant]
     Indication: CROHN'S DISEASE
     Dates: start: 20090101
  4. ADALIMUMAB [Concomitant]
     Dates: start: 20080101
  5. INFLIXIMAB, RECOMBINANT [Suspect]
     Indication: CROHN'S DISEASE
     Route: 042
     Dates: end: 20080101
  6. ADALIMUMAB [Concomitant]

REACTIONS (1)
  - MYCOBACTERIUM AVIUM COMPLEX INFECTION [None]
